FAERS Safety Report 13940085 (Version 1)
Quarter: 2017Q3

REPORT INFORMATION
  Report Type: Spontaneous
  Country: DE (occurrence: DE)
  Receive Date: 20170906
  Receipt Date: 20170906
  Transmission Date: 20171127
  Serious: Yes (Other)
  Sender: FDA-Public Use
  Company Number: DE-CELGENEUS-DEU-20170807961

PATIENT
  Age: 82 Year
  Sex: Male

DRUGS (2)
  1. DEXAMETHASONE. [Concomitant]
     Active Substance: DEXAMETHASONE
     Indication: PLASMA CELL MYELOMA RECURRENT
     Dosage: 20 MILLIGRAM
     Route: 065
  2. REVLIMID [Suspect]
     Active Substance: LENALIDOMIDE
     Indication: PLASMA CELL MYELOMA RECURRENT
     Dosage: 2.1429 MILLIGRAM
     Route: 048

REACTIONS (8)
  - Muscular weakness [Unknown]
  - Myopathy [Unknown]
  - Polyneuropathy [Unknown]
  - Personality change [Unknown]
  - Blood creatine phosphokinase increased [Unknown]
  - Disorientation [Unknown]
  - Memory impairment [Unknown]
  - Oedema peripheral [Unknown]
